FAERS Safety Report 5179719-3 (Version None)
Quarter: 2006Q4

REPORT INFORMATION
  Report Type: 
  Country: None (occurrence: None)
  Receive Date: 20061211
  Receipt Date: 20061204
  Transmission Date: 20070319
  Serious: Yes (Death, Other)
  Sender: FDA-Public Use
  Company Number: 163-21880-06110494

PATIENT
  Sex: Male

DRUGS (1)
  1. REVLIMID [Suspect]
     Indication: MYELODYSPLASTIC SYNDROME
     Dosage: 10 MG, 1 IN 1 D, ORAL
     Route: 054
     Dates: start: 20060605

REACTIONS (3)
  - SEPSIS [None]
  - STAPHYLOCOCCAL BACTERAEMIA [None]
  - UROSEPSIS [None]
